FAERS Safety Report 5807612-9 (Version None)
Quarter: 2008Q3

REPORT INFORMATION
  Report Type: 
  Country: None (occurrence: None)
  Receive Date: 20080708
  Receipt Date: 20080623
  Transmission Date: 20090109
  Serious: Yes (Hospitalization)
  Sender: FDA-Public Use
  Company Number: S08-ESP-02261-01

PATIENT
  Age: 65 Year
  Sex: Female

DRUGS (5)
  1. CIPRALEX [Suspect]
     Indication: DEPRESSION
     Dosage: 10 MG QD PO
     Route: 048
     Dates: start: 20080428, end: 20080516
  2. ASPIRIN [Suspect]
     Indication: CEREBRAL ISCHAEMIA
     Dosage: 100 MG QD PO
     Route: 048
     Dates: start: 20070101, end: 20080501
  3. SINEMET [Concomitant]
  4. RIVASTIGMINE TARTRATE [Concomitant]
  5. COZAAR [Concomitant]

REACTIONS (3)
  - DRUG INTERACTION [None]
  - MELAENA [None]
  - UPPER GASTROINTESTINAL HAEMORRHAGE [None]
